FAERS Safety Report 6021179-4 (Version None)
Quarter: 2008Q4

REPORT INFORMATION
  Report Type: 
  Country: None (occurrence: None)
  Receive Date: 20081229
  Receipt Date: 20081215
  Transmission Date: 20090506
  Serious: Yes (Hospitalization)
  Sender: FDA-Public Use
  Company Number: JP-PFIZER INC-2008156797

PATIENT

DRUGS (7)
  1. MIGLITOL [Suspect]
     Indication: DIABETES MELLITUS
     Dosage: 150 MG, 1X/DAY
     Route: 048
     Dates: start: 20081017, end: 20081112
  2. ASPIRIN [Concomitant]
     Dosage: 100 MG, UNK
     Route: 048
  3. SIGMART [Concomitant]
     Dosage: 15 MG, UNK
     Route: 048
  4. LIPIDIL [Concomitant]
     Dosage: 200 MG, UNK
     Route: 048
  5. ACTOS [Concomitant]
     Dosage: 30 MG, UNK
     Route: 048
  6. AMARYL [Concomitant]
     Dosage: 3 MG, UNK
     Route: 048
  7. BASEN [Concomitant]
     Indication: DIABETES MELLITUS
     Dosage: UNK
     Dates: end: 20081016

REACTIONS (1)
  - LIVER DISORDER [None]
